FAERS Safety Report 4752903-6 (Version None)
Quarter: 2005Q3

REPORT INFORMATION
  Report Type: 
  Country: None (occurrence: None)
  Receive Date: 20050823
  Receipt Date: 20050808
  Transmission Date: 20060218
  Serious: Yes (Hospitalization)
  Sender: FDA-Public Use
  Company Number: VIS10203.2005

PATIENT
  Age: 76 Year
  Sex: Female

DRUGS (10)
  1. VISICOL [Suspect]
     Indication: COLONOSCOPY
     Dosage: 28 G ONCE PO
     Route: 048
     Dates: start: 20050601, end: 20050601
  2. DULCOLAX [Concomitant]
  3. GLUCOPHAGE [Concomitant]
  4. GLUCOTROL [Concomitant]
  5. LOPRESSOR [Concomitant]
  6. DIOVAN [Concomitant]
  7. CALAN [Concomitant]
  8. LODINE [Concomitant]
  9. HYDROCHLOROTHIAZIDE [Concomitant]
  10. CALCIUM GLUCONATE [Concomitant]

REACTIONS (21)
  - ASTHENIA [None]
  - BLOOD PHOSPHORUS INCREASED [None]
  - BLOOD POTASSIUM INCREASED [None]
  - BRADYCARDIA [None]
  - BUNDLE BRANCH BLOCK RIGHT [None]
  - CHROMATURIA [None]
  - DECREASED APPETITE [None]
  - DEHYDRATION [None]
  - DYSPNOEA [None]
  - DYSPNOEA EXERTIONAL [None]
  - DYSPNOEA PAROXYSMAL NOCTURNAL [None]
  - HYPERHIDROSIS [None]
  - NAUSEA [None]
  - OEDEMA PERIPHERAL [None]
  - ORTHOPNOEA [None]
  - RENAL FAILURE ACUTE [None]
  - SUPRAVENTRICULAR TACHYCARDIA [None]
  - URINE OUTPUT DECREASED [None]
  - VENTRICULAR HYPERTROPHY [None]
  - VOMITING [None]
  - WANDERING PACEMAKER [None]
